FAERS Safety Report 21773922 (Version 1)
Quarter: 2022Q4

REPORT INFORMATION
  Report Type: Spontaneous
  Country: US (occurrence: US)
  Receive Date: 20221223
  Receipt Date: 20221223
  Transmission Date: 20230113
  Serious: Yes (Other)
  Sender: FDA-Public Use
  Company Number: US-PFIZER INC-202201372423

PATIENT
  Age: 61 Year
  Sex: Female
  Weight: 81.647 kg

DRUGS (1)
  1. ARTHROTEC [Suspect]
     Active Substance: DICLOFENAC SODIUM\MISOPROSTOL
     Indication: Osteoarthritis
     Dosage: 2 DF, DAILY (50MG AND 200MCG, TAKES 1 TABLET IN MORNING AND 1 TABLET WITH DINNER) X 20 YEARS
     Route: 048

REACTIONS (1)
  - Drug dependence [Unknown]
